FAERS Safety Report 13935271 (Version 3)
Quarter: 2017Q3

REPORT INFORMATION
  Report Type: Report from Study
  Country: US (occurrence: US)
  Receive Date: 20170905
  Receipt Date: 20170929
  Transmission Date: 20171127
  Serious: Yes (Death, Hospitalization, Other)
  Sender: FDA-Public Use
  Company Number: US-GILEAD-2017-0291695

PATIENT
  Age: 78 Year
  Sex: Female

DRUGS (13)
  1. AMBRISENTAN [Suspect]
     Active Substance: AMBRISENTAN
     Indication: CREST SYNDROME
  2. LETROZOLE. [Concomitant]
     Active Substance: LETROZOLE
  3. XANAX [Concomitant]
     Active Substance: ALPRAZOLAM
  4. DILAUDID [Concomitant]
     Active Substance: HYDROMORPHONE HYDROCHLORIDE
  5. AMBRISENTAN [Suspect]
     Active Substance: AMBRISENTAN
     Indication: PULMONARY HYPERTENSION
     Dosage: 5 MG, QD
     Route: 048
     Dates: start: 20170810, end: 20170820
  6. ZOLOFT [Concomitant]
     Active Substance: SERTRALINE HYDROCHLORIDE
  7. AMBRISENTAN [Suspect]
     Active Substance: AMBRISENTAN
     Indication: SCLERODERMA
  8. HALDOL [Concomitant]
     Active Substance: HALOPERIDOL
  9. ADCIRCA [Concomitant]
     Active Substance: TADALAFIL
  10. PROAIR HFA [Concomitant]
     Active Substance: ALBUTEROL SULFATE
  11. LASIX [Concomitant]
     Active Substance: FUROSEMIDE
  12. DUONEB [Concomitant]
     Active Substance: ALBUTEROL SULFATE\IPRATROPIUM BROMIDE
  13. MORPHINE [Concomitant]
     Active Substance: MORPHINE

REACTIONS (2)
  - Pulmonary arterial hypertension [Fatal]
  - Haemorrhage [Fatal]

NARRATIVE: CASE EVENT DATE: 20170820
